FAERS Safety Report 9788094 (Version 1)
Quarter: 2013Q4

REPORT INFORMATION
  Report Type: Spontaneous
  Country: US (occurrence: US)
  Receive Date: 20131230
  Receipt Date: 20131230
  Transmission Date: 20140711
  Serious: No
  Sender: FDA-Public Use
  Company Number: US-009507513-1312USA004889

PATIENT
  Age: 83 Year
  Sex: Female

DRUGS (4)
  1. NASONEX [Suspect]
     Indication: UPPER-AIRWAY COUGH SYNDROME
     Dosage: TWO SPRAYS IN EACH NOSTRIL ONCE A DAY
     Route: 045
     Dates: start: 20131206
  2. GABAPENTIN [Concomitant]
  3. LIPITOR [Concomitant]
  4. TRICOR (ADENOSINE) [Concomitant]

REACTIONS (2)
  - Nasal discomfort [Not Recovered/Not Resolved]
  - Flushing [Not Recovered/Not Resolved]
